APPROVED DRUG PRODUCT: LORATADINE AND PSEUDOEPHEDRINE SULFATE
Active Ingredient: LORATADINE; PSEUDOEPHEDRINE SULFATE
Strength: 10MG;240MG
Dosage Form/Route: TABLET, EXTENDED RELEASE;ORAL
Application: A076557 | Product #001
Applicant: SUN PHARMACEUTICAL INDUSTRIES LTD
Approved: Sep 22, 2004 | RLD: No | RS: No | Type: OTC